FAERS Safety Report 24011096 (Version 1)
Quarter: 2024Q2

REPORT INFORMATION
  Report Type: Spontaneous
  Country: US (occurrence: None)
  Receive Date: 20240625
  Receipt Date: 20240625
  Transmission Date: 20240716
  Serious: Yes (Disabling)
  Sender: FDA-Public Use
  Company Number: None

PATIENT
  Age: 42 Year
  Sex: Male
  Weight: 104.85 kg

DRUGS (3)
  1. WHARTON JELLY DERIVED UMBILICAL CORD MESENCHYMAL STEM CELLS [Suspect]
     Active Substance: WHARTON JELLY DERIVED UMBILICAL CORD MESENCHYMAL STEM CELLS
     Indication: Tendonitis
     Route: 058
     Dates: start: 20240502, end: 20240502
  2. ARMOUR THYROID [Concomitant]
     Active Substance: THYROID, PORCINE
  3. CLOMID [Concomitant]
     Active Substance: CLOMIPHENE CITRATE

REACTIONS (4)
  - Joint swelling [None]
  - Peripheral swelling [None]
  - Pain in extremity [None]
  - Gait disturbance [None]

NARRATIVE: CASE EVENT DATE: 20240502
